FAERS Safety Report 15742334 (Version 1)
Quarter: 2018Q4

REPORT INFORMATION
  Report Type: Spontaneous
  Country: US (occurrence: US)
  Receive Date: 20181219
  Receipt Date: 20181219
  Transmission Date: 20190205
  Serious: Yes (Other)
  Sender: FDA-Public Use
  Company Number: None

PATIENT
  Age: 76 Year
  Sex: Male
  Weight: 108 kg

DRUGS (1)
  1. RHOPRESSA [Suspect]
     Active Substance: NETARSUDIL MESYLATE
     Indication: INTRAOCULAR PRESSURE TEST ABNORMAL
     Dosage: ?          QUANTITY:1 DROP(S);?
     Route: 047

REACTIONS (1)
  - Photophobia [None]

NARRATIVE: CASE EVENT DATE: 20181205
